FAERS Safety Report 4621165-2 (Version None)
Quarter: 2005Q1

REPORT INFORMATION
  Report Type: 
  Country: None (occurrence: None)
  Receive Date: 20050328
  Receipt Date: 20050317
  Transmission Date: 20050727
  Serious: Yes (Hospitalization)
  Sender: FDA-Public Use
  Company Number: 200510182BFR

PATIENT
  Age: 80 Year
  Sex: Female

DRUGS (3)
  1. CIPROFLOXACIN HCL [Suspect]
     Dosage: 400 MG, TOTAL DAILY, INTRAVENOUS
     Route: 042
     Dates: start: 20050126, end: 20050127
  2. CIPROFLOXACIN HCL [Suspect]
     Dosage: 1 G, TOTAL DAILY, ORAL
     Route: 048
     Dates: start: 20050125, end: 20050126
  3. PREVISCAN (FLUINDIONE) [Suspect]
     Dosage: 20 MG, QD, ORAL
     Route: 048
     Dates: end: 20050126

REACTIONS (4)
  - GASTROINTESTINAL DISORDER [None]
  - INTERNATIONAL NORMALISED RATIO INCREASED [None]
  - OVERDOSE [None]
  - VITAMIN K DECREASED [None]
